FAERS Safety Report 4410039-8 (Version None)
Quarter: 2004Q3

REPORT INFORMATION
  Report Type: 
  Country: None (occurrence: None)
  Receive Date: 20040726
  Receipt Date: 20040716
  Transmission Date: 20050211
  Serious: Yes (Other)
  Sender: FDA-Public Use
  Company Number: 2004-06-0700

PATIENT
  Age: 60 Year
  Sex: Male
  Weight: 74 kg

DRUGS (4)
  1. REBETOL [Suspect]
     Indication: HEPATITIS C
     Dosage: 800 MG ORAL
     Route: 048
     Dates: start: 20040210, end: 20040528
  2. INTRON A [Suspect]
     Indication: HEPATITIS C
     Dosage: 6 MU TIW INTRAMUSCULAR
     Route: 030
     Dates: start: 20040210, end: 20040528
  3. BOPINDOLOL TABLETS [Concomitant]
  4. AMLODIPINE BESILATE TABLETS [Concomitant]

REACTIONS (5)
  - ABNORMAL BEHAVIOUR [None]
  - ANAEMIA [None]
  - DEPRESSED LEVEL OF CONSCIOUSNESS [None]
  - SPEECH DISORDER [None]
  - VISION BLURRED [None]
